FAERS Safety Report 8028619 (Version 2)
Quarter: 2013Q1

REPORT INFORMATION
  Report Type: Spontaneous
  Country: GB (occurrence: None)
  Receive Date: 20110622
  Receipt Date: 20130329
  Transmission Date: 20140127
  Serious: Yes (Other)
  Sender: FDA-Public Use
  Company Number: AUR-APL-2011-02783

PATIENT
  Age: 47 Year
  Sex: Male

DRUGS (3)
  1. FLUOXETINE [Suspect]
  2. RISPERIDONE (RISPERIDONE) [Suspect]
  3. AMITRIPTYLINE HYDROCHLORIDE [Suspect]

REACTIONS (4)
  - PITUITARY TUMOUR BENIGN [None]
  - VISUAL FIELD DEFECT [None]
  - BLOOD PROLACTIN INCREASED [None]
  - Secondary hypogonadism [None]
